FAERS Safety Report 24429590 (Version 1)
Quarter: 2024Q4

REPORT INFORMATION
  Report Type: Spontaneous
  Country: SI (occurrence: SI)
  Receive Date: 20241012
  Receipt Date: 20241012
  Transmission Date: 20250115
  Serious: Yes (Other)
  Sender: CELLTRION
  Company Number: SI-AstraZeneca-2023-17944

PATIENT

DRUGS (7)
  1. TRASTUZUMAB [Suspect]
     Active Substance: TRASTUZUMAB
     Indication: Product used for unknown indication
  2. ENHERTU [Suspect]
     Active Substance: FAM-TRASTUZUMAB DERUXTECAN-NXKI
     Indication: Breast cancer
     Route: 042
  3. ENHERTU [Suspect]
     Active Substance: FAM-TRASTUZUMAB DERUXTECAN-NXKI
     Indication: Breast cancer
     Route: 042
  4. PERTUZUMAB [Concomitant]
     Active Substance: PERTUZUMAB
     Dosage: SEPT 2020
  5. CAPECITABINE [Concomitant]
     Active Substance: CAPECITABINE
  6. TUCATINIB [Concomitant]
     Active Substance: TUCATINIB
  7. DOCETAXEL [Concomitant]
     Active Substance: DOCETAXEL

REACTIONS (4)
  - Focal nodular hyperplasia [Unknown]
  - Drug-induced liver injury [Unknown]
  - Transaminases increased [Unknown]
  - Blood bilirubin [Unknown]
